FAERS Safety Report 11465316 (Version 1)
Quarter: 2015Q3

REPORT INFORMATION
  Report Type: Spontaneous
  Country: FR (occurrence: FR)
  Receive Date: 20150907
  Receipt Date: 20150907
  Transmission Date: 20151125
  Serious: Yes (Hospitalization)
  Sender: FDA-Public Use
  Company Number: FR-ROCHE-1630713

PATIENT
  Age: 53 Year
  Sex: Female

DRUGS (5)
  1. OFLOXACINE [Concomitant]
     Active Substance: OFLOXACIN
  2. VANCOMYCINE [Suspect]
     Active Substance: VANCOMYCIN
     Indication: URINARY TRACT INFECTION
     Route: 051
     Dates: start: 20140805, end: 20140825
  3. COLCHICINE. [Suspect]
     Active Substance: COLCHICINE
     Indication: GOUT
     Route: 048
     Dates: start: 20140815, end: 20140820
  4. GENTAMICINE [Concomitant]
     Active Substance: GENTAMICIN
  5. ROCEPHINE [Suspect]
     Active Substance: CEFTRIAXONE SODIUM
     Indication: URINARY TRACT INFECTION
     Route: 051
     Dates: start: 20140805, end: 20140818

REACTIONS (2)
  - Thrombocytopenia [Recovered/Resolved]
  - Purpura [Recovered/Resolved]

NARRATIVE: CASE EVENT DATE: 20140817
